FAERS Safety Report 7564502-1 (Version None)
Quarter: 2011Q2

REPORT INFORMATION
  Report Type: 
  Country: None (occurrence: None)
  Receive Date: 20110622
  Receipt Date: 20110617
  Transmission Date: 20111010
  Serious: Yes (Death, Hospitalization, Other)
  Sender: FDA-Public Use
  Company Number: PHEH2008US02535

PATIENT
  Sex: Female

DRUGS (10)
  1. OXYFAST [Concomitant]
  2. ZOLOFT [Concomitant]
  3. MYCELEX [Concomitant]
  4. SENOKOT                                 /UNK/ [Concomitant]
  5. COMPAZINE [Concomitant]
  6. COLACE [Concomitant]
  7. OXYCONTIN [Concomitant]
  8. AREDIA [Suspect]
  9. ELAVIL [Concomitant]
  10. MEGACE [Concomitant]

REACTIONS (28)
  - INFECTION [None]
  - METASTATIC NEOPLASM [None]
  - DEATH [None]
  - INJURY [None]
  - NEOPLASM PROGRESSION [None]
  - NEOPLASM MALIGNANT [None]
  - CARDIAC MURMUR [None]
  - PAIN [None]
  - OSTEONECROSIS OF JAW [None]
  - PAIN IN JAW [None]
  - HYPOAESTHESIA [None]
  - MASTOIDITIS [None]
  - ANAEMIA OF CHRONIC DISEASE [None]
  - DIZZINESS [None]
  - DEFORMITY [None]
  - COMPRESSION FRACTURE [None]
  - ANXIETY [None]
  - BONE LESION [None]
  - METASTASES TO LIVER [None]
  - CATHETER SITE HAEMORRHAGE [None]
  - URINARY TRACT INFECTION [None]
  - PHYSICAL DISABILITY [None]
  - INTERVERTEBRAL DISC PROTRUSION [None]
  - OSTEOMYELITIS [None]
  - PARAESTHESIA [None]
  - NAUSEA [None]
  - VOMITING [None]
  - METASTASES TO BONE [None]
